FAERS Safety Report 9241596 (Version 1)
Quarter: 2013Q2

REPORT INFORMATION
  Report Type: Spontaneous
  Country: CA (occurrence: CA)
  Receive Date: 20130419
  Receipt Date: 20130419
  Transmission Date: 20140414
  Serious: Yes (Hospitalization)
  Sender: FDA-Public Use
  Company Number: CA-ELI_LILLY_AND_COMPANY-CA201304003868

PATIENT
  Age: 86 Year
  Sex: Female

DRUGS (10)
  1. FORTEO [Suspect]
     Indication: OSTEOPOROSIS
     Dosage: 20MCG. OD
     Route: 058
     Dates: start: 20120508
  2. CELEBREX [Concomitant]
  3. CALCIUM [Concomitant]
  4. SPIRIVA [Concomitant]
  5. ADVAIR [Concomitant]
  6. SYNTHROID [Concomitant]
  7. HYDROMORPHONE [Concomitant]
  8. AVAPRO [Concomitant]
  9. ASA [Concomitant]
  10. D-TABS [Concomitant]

REACTIONS (3)
  - Bronchitis [Recovered/Resolved]
  - Asthenia [Not Recovered/Not Resolved]
  - Arthritis [Not Recovered/Not Resolved]
